FAERS Safety Report 10507843 (Version 1)
Quarter: 2014Q4

REPORT INFORMATION
  Report Type: Spontaneous
  Country: GB (occurrence: GB)
  Receive Date: 20141009
  Receipt Date: 20141009
  Transmission Date: 20150528
  Serious: Yes (Other)
  Sender: FDA-Public Use
  Company Number: GB-MYLANLABS-2014M1006119

PATIENT

DRUGS (1)
  1. EPROSARTAN MYLAN 400 MG FILM-COATED TABLETS [Suspect]
     Active Substance: EPROSARTAN
     Dosage: 400 MG, BID
     Route: 048

REACTIONS (5)
  - Diarrhoea [Recovering/Resolving]
  - Muscle spasms [Recovering/Resolving]
  - Asthenia [Recovering/Resolving]
  - Vision blurred [Recovering/Resolving]
  - Pain [Recovering/Resolving]
